FAERS Safety Report 7988852-X (Version None)
Quarter: 2011Q4

REPORT INFORMATION
  Report Type: 
  Country: None (occurrence: None)
  Receive Date: 20111215
  Receipt Date: 20111215
  Transmission Date: 20120403
  Serious: Yes (Other)
  Sender: FDA-Public Use
  Company Number: None

PATIENT
  Age: 30 Year
  Sex: Male
  Weight: 86.4 kg

DRUGS (3)
  1. ABILIFY [Suspect]
     Indication: SCHIZOPHRENIA
     Dosage: 15MG QD PO
     Route: 048
     Dates: start: 20101111, end: 20110101
  2. ABILIFY [Suspect]
     Indication: SCHIZOPHRENIA
     Dosage: 15MG QD PO
     Route: 048
     Dates: start: 20110501, end: 20110901
  3. ABILIFY [Suspect]
     Dosage: 20MG QD PO
     Route: 048
     Dates: start: 20110101, end: 20110401

REACTIONS (3)
  - FEELING ABNORMAL [None]
  - INTRAOCULAR PRESSURE INCREASED [None]
  - VISUAL IMPAIRMENT [None]
